FAERS Safety Report 19224948 (Version 1)
Quarter: 2021Q2

REPORT INFORMATION
  Report Type: Spontaneous
  Country: US (occurrence: US)
  Receive Date: 20210505
  Receipt Date: 20210505
  Transmission Date: 20210717
  Serious: No
  Sender: FDA-Public Use
  Company Number: US-ROCHE-2682496

PATIENT
  Age: 58 Year
  Sex: Male
  Weight: 81.72 kg

DRUGS (10)
  1. ESBRIET [Suspect]
     Active Substance: PIRFENIDONE
     Indication: IDIOPATHIC PULMONARY FIBROSIS
     Dosage: 267 MG TABS; 3 TABS 3X/DAY ;ONGOING: NO
     Route: 048
     Dates: start: 202005, end: 20201014
  2. VITAMIN D3 [Concomitant]
     Active Substance: CHOLECALCIFEROL
     Route: 048
  3. SILDENAFIL. [Concomitant]
     Active Substance: SILDENAFIL
     Dosage: ONGOING: YES
     Route: 048
  4. MYCOPHENOLATE MOFETIL. [Concomitant]
     Active Substance: MYCOPHENOLATE MOFETIL
     Dosage: ONE 500MG PILL IN THE MORNING, ONGOING: YES
     Route: 048
  5. POTASSIUM [Concomitant]
     Active Substance: POTASSIUM
     Route: 048
  6. VITAMIN C [Concomitant]
     Active Substance: ASCORBIC ACID
     Route: 048
  7. ATORVASTATIN [Concomitant]
     Active Substance: ATORVASTATIN
     Indication: BLOOD CHOLESTEROL INCREASED
     Dosage: ONGOING: YES
     Route: 048
  8. OMEGA 3 [FISH OIL] [Concomitant]
     Active Substance: FISH OIL
     Route: 048
  9. ELIQUIS [Concomitant]
     Active Substance: APIXABAN
     Indication: ANTICOAGULANT THERAPY
     Route: 048
  10. MYCOPHENOLATE MOFETIL. [Concomitant]
     Active Substance: MYCOPHENOLATE MOFETIL
     Dosage: 500 MG TABS X 2 AS TOTAL DOSE
     Route: 065

REACTIONS (2)
  - Rash [Recovering/Resolving]
  - Product dose omission in error [Unknown]

NARRATIVE: CASE EVENT DATE: 202008
